FAERS Safety Report 19046318 (Version 2)
Quarter: 2021Q3

REPORT INFORMATION
  Report Type: Spontaneous
  Country: US (occurrence: US)
  Receive Date: 20210323
  Receipt Date: 20210720
  Transmission Date: 20211014
  Serious: Yes (Hospitalization, Other)
  Sender: FDA-Public Use
  Company Number: US-ELI_LILLY_AND_COMPANY-US202103007416

PATIENT
  Age: 32 Year
  Sex: Male

DRUGS (2)
  1. BASAGLAR [Suspect]
     Active Substance: INSULIN GLARGINE
     Indication: PRODUCT USED FOR UNKNOWN INDICATION
     Dosage: UNK UNK, UNKNOWN
     Route: 065
  2. VALPROIC ACID. [Suspect]
     Active Substance: VALPROIC ACID
     Indication: MOOD SWINGS
     Dosage: UNK, UNKNOWN
     Route: 065

REACTIONS (7)
  - Coma [Unknown]
  - Diabetic ketoacidosis [Unknown]
  - Insomnia [Unknown]
  - Somnolence [Unknown]
  - Encephalopathy [Unknown]
  - Brain injury [Unknown]
  - Diabetic hyperglycaemic coma [Unknown]
